FAERS Safety Report 17312680 (Version 1)
Quarter: 2020Q1

REPORT INFORMATION
  Report Type: Other
  Country: IT (occurrence: IT)
  Receive Date: 20200123
  Receipt Date: 20200123
  Transmission Date: 20200409
  Serious: Yes (Hospitalization)
  Sender: FDA-Public Use
  Company Number: IT-CELLTRION INC.-2020IT017772

PATIENT

DRUGS (8)
  1. PACLITAXEL. [Suspect]
     Active Substance: PACLITAXEL
     Indication: HER-2 POSITIVE BREAST CANCER
     Dosage: UNK
  2. PERTUZUMAB. [Suspect]
     Active Substance: PERTUZUMAB
     Indication: HER-2 POSITIVE BREAST CANCER
     Dosage: RECEIVED TOTAL 6 CYCLES. LAST DOSE OF PERTUZUMAB BEFORE THE SAE/ SERIOUS ADVERSE EVENT WAS ON 12/SEP
     Route: 042
     Dates: start: 20190506
  3. TRASTUZUMAB (UNKNOWN) [Suspect]
     Active Substance: TRASTUZUMAB
     Indication: HER-2 POSITIVE BREAST CANCER
     Dosage: NO OF CYCLES RECEIVED 6 LAST DOSE OF TRASTUZUMAB BEFORE THE SAE/ SERIOUS ADVERSE EVENT WAS ON 12/SE
     Route: 041
     Dates: start: 20190506
  4. TRASTUZUMAB (UNKNOWN) [Suspect]
     Active Substance: TRASTUZUMAB
     Indication: BREAST CANCER
     Dosage: UNK
  5. CARBOPLATIN. [Suspect]
     Active Substance: CARBOPLATIN
     Indication: HER-2 POSITIVE BREAST CANCER
     Dosage: UNK
  6. CARBOPLATIN. [Suspect]
     Active Substance: CARBOPLATIN
     Indication: BREAST CANCER
     Dosage: LAST DOSE OF CARBOPLATIN BEFORE THE SAE/ SERIOUS ADVERSE EVENT WAS ON 12/SEP/2019
     Route: 042
     Dates: start: 20190506, end: 20190912
  7. PACLITAXEL. [Suspect]
     Active Substance: PACLITAXEL
     Indication: BREAST CANCER
     Dosage: 121.8 MBQ. LAST DOSE OF PACLITAXEL BEFORE THE SAE/ SERIOUS ADVERSE EVENT WAS ON 12/SEP/2019
     Route: 042
  8. PERTUZUMAB. [Suspect]
     Active Substance: PERTUZUMAB
     Indication: BREAST CANCER
     Dosage: UNK

REACTIONS (2)
  - Product use issue [Unknown]
  - Post procedural haemorrhage [Recovered/Resolved]

NARRATIVE: CASE EVENT DATE: 20191106
